FAERS Safety Report 4437417-5 (Version None)
Quarter: 2004Q3

REPORT INFORMATION
  Report Type: 
  Country: None (occurrence: None)
  Receive Date: 20040830
  Receipt Date: 20040830
  Transmission Date: 20050211
  Serious: Yes (Hospitalization)
  Sender: FDA-Public Use
  Company Number: None

PATIENT
  Age: 56 Year
  Sex: Male

DRUGS (6)
  1. TYLENOL [Suspect]
     Indication: PAIN IN EXTREMITY
  2. MORPHINE [Suspect]
  3. COUMADIN [Concomitant]
  4. ALBUTEROL [Concomitant]
  5. METOPROLOL [Concomitant]
  6. RIFAMPIN [Concomitant]

REACTIONS (4)
  - NAUSEA [None]
  - SELF-MEDICATION [None]
  - URINE OUTPUT DECREASED [None]
  - VOMITING [None]
